FAERS Safety Report 11281693 (Version 2)
Quarter: 2017Q3

REPORT INFORMATION
  Report Type: Other
  Country: CA (occurrence: CA)
  Receive Date: 20150717
  Receipt Date: 20170907
  Transmission Date: 20171127
  Serious: Yes (Hospitalization)
  Sender: FDA-Public Use
  Company Number: CA-TAKEDA-2015TUS009101

PATIENT
  Age: 87 Year
  Sex: Female
  Weight: 37.7 kg

DRUGS (5)
  1. DEXILANT [Suspect]
     Active Substance: DEXLANSOPRAZOLE
     Indication: HAEMORRHAGE
  2. MAGNESIUM GLUCONATE [Concomitant]
     Active Substance: MAGNESIUM GLUCONATE
     Dosage: 500 MG, BID
     Route: 048
     Dates: start: 20141214, end: 20141215
  3. DEXILANT [Suspect]
     Active Substance: DEXLANSOPRAZOLE
     Indication: UPPER GASTROINTESTINAL HAEMORRHAGE
     Dosage: 60 MG, QD
     Route: 048
     Dates: start: 20141223, end: 20150115
  4. LAX-A-DAY [Concomitant]
     Dosage: UNK
     Dates: start: 20141219, end: 20141223
  5. TAMIFLU [Concomitant]
     Active Substance: OSELTAMIVIR PHOSPHATE
     Dosage: 75 MG, BID
     Dates: start: 20141218, end: 20141222

REACTIONS (10)
  - Prealbumin decreased [Recovered/Resolved]
  - Haematochezia [Recovered/Resolved]
  - Blood albumin decreased [Recovered/Resolved]
  - Hypomagnesaemia [Recovered/Resolved]
  - Dehydration [Recovered/Resolved]
  - Rectal haemorrhage [Recovered/Resolved]
  - Diverticulum [Recovered/Resolved]
  - Hypokalaemia [Recovered/Resolved]
  - Colitis microscopic [Recovered/Resolved]
  - Diarrhoea [Recovering/Resolving]
